FAERS Safety Report 5273806-7 (Version None)
Quarter: 2007Q1

REPORT INFORMATION
  Report Type: 
  Country: None (occurrence: None)
  Receive Date: 20070321
  Receipt Date: 20070321
  Transmission Date: 20070707
  Serious: Yes (Other)
  Sender: FDA-Public Use
  Company Number: None

PATIENT
  Sex: Male

DRUGS (1)
  1. SIMVASTATIN [Suspect]
     Indication: BLOOD CHOLESTEROL INCREASED
     Dosage: 90 DAILY PO
     Route: 048
     Dates: start: 20070214, end: 20070226

REACTIONS (4)
  - DIZZINESS [None]
  - DYSSTASIA [None]
  - FALL [None]
  - ILL-DEFINED DISORDER [None]
